FAERS Safety Report 22128589 (Version 3)
Quarter: 2023Q2

REPORT INFORMATION
  Report Type: Spontaneous
  Country: US (occurrence: US)
  Receive Date: 20230323
  Receipt Date: 20230622
  Transmission Date: 20230722
  Serious: Yes (Hospitalization, Other)
  Sender: FDA-Public Use
  Company Number: US-BRISTOL-MYERS SQUIBB COMPANY-2023-040587

PATIENT
  Age: 83 Year
  Sex: Female

DRUGS (7)
  1. REVLIMID [Suspect]
     Active Substance: LENALIDOMIDE
     Indication: Plasma cell myeloma
     Route: 048
     Dates: start: 20230221, end: 20230425
  2. LOSARTAN [Concomitant]
     Active Substance: LOSARTAN
     Indication: Product used for unknown indication
  3. XARELTO [Concomitant]
     Active Substance: RIVAROXABAN
     Indication: Product used for unknown indication
  4. DEXAMETHASONE [Concomitant]
     Active Substance: DEXAMETHASONE
     Indication: Product used for unknown indication
  5. ZOMETA [Concomitant]
     Active Substance: ZOLEDRONIC ACID
     Indication: Product used for unknown indication
     Dosage: 4 MG/5ML
  6. ONE DAILY WOMEN^S [MINERALS NOS;VACCINIUM SPP.;VITAMINS NOS] [Concomitant]
     Indication: Product used for unknown indication
     Dosage: 1 DAILY
  7. VELCADE [Concomitant]
     Active Substance: BORTEZOMIB
     Indication: Plasma cell myeloma
     Dosage: 1 VIAL

REACTIONS (29)
  - Skin cancer [Unknown]
  - Liver function test increased [Unknown]
  - Sepsis [Unknown]
  - Immunodeficiency [Unknown]
  - Abdominal abscess [Unknown]
  - Abdominal pain [Unknown]
  - Urinary tract infection [Unknown]
  - Asthenia [Unknown]
  - Hyponatraemia [Unknown]
  - Hiatus hernia [Unknown]
  - Prerenal failure [Unknown]
  - Osteoarthritis [Unknown]
  - Fall [Unknown]
  - Nausea [Unknown]
  - Vomiting [Unknown]
  - Pain [Unknown]
  - Diarrhoea [Unknown]
  - Faeces hard [Unknown]
  - Confusional state [Unknown]
  - Back pain [Unknown]
  - Metabolic encephalopathy [Unknown]
  - Arthritis [Unknown]
  - Toxic encephalopathy [Unknown]
  - Pelvic abscess [Unknown]
  - Diverticular perforation [Unknown]
  - Acute kidney injury [Unknown]
  - Physical deconditioning [Unknown]
  - Plasma cell myeloma [Unknown]
  - Osteoporosis [Unknown]

NARRATIVE: CASE EVENT DATE: 20230101
